FAERS Safety Report 8590582-0 (Version None)
Quarter: 2012Q3

REPORT INFORMATION
  Report Type: 
  Country: None (occurrence: None)
  Receive Date: 20120813
  Receipt Date: 20120807
  Transmission Date: 20120928
  Serious: Yes (Other)
  Sender: FDA-Public Use
  Company Number: DE-BAYER-2011-090810

PATIENT
  Age: 28 Year
  Sex: Male
  Weight: 99.773 kg

DRUGS (1)
  1. GADAVIST [Suspect]
     Indication: NUCLEAR MAGNETIC RESONANCE IMAGING BRAIN
     Dosage: 10 ML, ONCE AT 2 ML/SEC
     Route: 042
     Dates: start: 20110915, end: 20110915

REACTIONS (3)
  - DIZZINESS [None]
  - VERTIGO [None]
  - VISION BLURRED [None]
